FAERS Safety Report 9491930 (Version 3)
Quarter: 2013Q3

REPORT INFORMATION
  Report Type: Spontaneous
  Country: JP (occurrence: JP)
  Receive Date: 20130830
  Receipt Date: 20130930
  Transmission Date: 20140515
  Serious: Yes (Other)
  Sender: FDA-Public Use
  Company Number: JP-PFIZER INC-2013248378

PATIENT
  Age: 57 Year
  Sex: Male

DRUGS (4)
  1. CARDENALIN [Suspect]
     Indication: HYPERTENSION
     Dosage: 2 MG/DAY
     Route: 048
     Dates: start: 201103, end: 201305
  2. OLMETEC [Suspect]
     Indication: HYPERTENSION
     Dosage: 5 MG/DAY
     Route: 048
     Dates: start: 201305, end: 201308
  3. PRECIPITATED CALCIUM CARBONATE [Concomitant]
     Dosage: UNK
  4. ADALAT CR [Concomitant]
     Dosage: 20 MG/DAY

REACTIONS (1)
  - Atrial fibrillation [Recovered/Resolved]
